FAERS Safety Report 13423534 (Version 1)
Quarter: 2017Q2

REPORT INFORMATION
  Report Type: Report from Study
  Country: None (occurrence: US)
  Receive Date: 20170410
  Receipt Date: 20170410
  Transmission Date: 20170830
  Serious: Yes (Hospitalization)
  Sender: FDA-Public Use
  Company Number: US-ABBVIE-17K-163-1856377-00

PATIENT
  Sex: Male

DRUGS (2)
  1. HUMIRA [Suspect]
     Active Substance: ADALIMUMAB
     Indication: PSORIATIC ARTHROPATHY
     Route: 058
     Dates: start: 201601
  2. HUMIRA [Suspect]
     Active Substance: ADALIMUMAB
     Indication: PSORIASIS
     Route: 058
     Dates: start: 2009, end: 201512

REACTIONS (8)
  - Arthralgia [Unknown]
  - Psoriasis [Unknown]
  - Fatigue [Unknown]
  - Therapeutic response shortened [Unknown]
  - Intervertebral disc protrusion [Recovered/Resolved]
  - Exostosis [Unknown]
  - Spondylitis [Unknown]
  - Headache [Unknown]

NARRATIVE: CASE EVENT DATE: 2015
